FAERS Safety Report 8294665-4 (Version None)
Quarter: 2012Q2

REPORT INFORMATION
  Report Type: 
  Country: None (occurrence: None)
  Receive Date: 20120418
  Receipt Date: 20120410
  Transmission Date: 20120825
  Serious: Yes (Hospitalization, Other)
  Sender: FDA-Public Use
  Company Number: JP-ASTELLAS-2012JP003181

PATIENT
  Age: 76 Year
  Sex: Female

DRUGS (9)
  1. PROGRAF [Suspect]
     Indication: RHEUMATOID ARTHRITIS
     Dosage: 1.5 MG, UNKNOWN/D
     Route: 048
     Dates: start: 20120301, end: 20120409
  2. PREDNISOLONE [Concomitant]
     Dosage: 2.5 MG, UNKNOWN/D
     Route: 048
  3. MUCOSTA [Concomitant]
     Dosage: 200 MG, UNKNOWN/D
     Route: 048
  4. ALENDRONATE SODIUM [Concomitant]
     Dosage: 35 MG, UNKNOWN/D
     Route: 048
  5. PROGRAF [Suspect]
     Dosage: 1 MG, UNKNOWN/D
     Route: 048
     Dates: end: 20120301
  6. OMEPRAZOLE [Concomitant]
     Dosage: 20 MG, UNKNOWN/D
     Route: 048
  7. VITAMIN B12 [Concomitant]
     Dosage: 500 UG, UNKNOWN/D
     Route: 048
  8. ALFAROL [Concomitant]
     Dosage: 1 UG, UNKNOWN/D
     Route: 048
  9. CELEBREX [Concomitant]
     Dosage: 200 MG, UNKNOWN/D
     Route: 048

REACTIONS (6)
  - DECREASED APPETITE [None]
  - RENAL IMPAIRMENT [None]
  - FACIAL SPASM [None]
  - VISION BLURRED [None]
  - VOMITING [None]
  - MALAISE [None]
